FAERS Safety Report 4711660-X (Version None)
Quarter: 2005Q2

REPORT INFORMATION
  Report Type: 
  Country: None (occurrence: None)
  Receive Date: 20050629
  Receipt Date: 20050401
  Transmission Date: 20051028
  Serious: No
  Sender: FDA-Public Use
  Company Number: 05P-163-0295995-00

PATIENT
  Age: 69 Year
  Sex: Female
  Weight: 81.1939 kg

DRUGS (9)
  1. HUMIRA [Suspect]
     Indication: RHEUMATOID ARTHRITIS
     Dosage: 40 MG, SUBCUTANEOUS
     Route: 058
     Dates: start: 20031001, end: 20050301
  2. PREDNISONE [Concomitant]
  3. CYANOCOBALAMIN [Concomitant]
  4. FEXOFENADINE HYDROHCLORIDE [Concomitant]
  5. DOXEPIN HCL [Concomitant]
  6. METOPROLOL SUCCINATE [Concomitant]
  7. OMEPRAZOLE [Concomitant]
  8. PULMACORT [Concomitant]
  9. FLUTICASONE PROPIONATE [Concomitant]

REACTIONS (3)
  - EMPHYSEMA [None]
  - FIBROMYALGIA [None]
  - NASOPHARYNGITIS [None]
